FAERS Safety Report 16597284 (Version 1)
Quarter: 2019Q3

REPORT INFORMATION
  Report Type: Spontaneous
  Country: CA (occurrence: CA)
  Receive Date: 20190719
  Receipt Date: 20190719
  Transmission Date: 20191004
  Serious: Yes (Other)
  Sender: FDA-Public Use
  Company Number: CA-PFIZER INC-2019306444

PATIENT
  Sex: Male

DRUGS (8)
  1. AMANTADINE. [Suspect]
     Active Substance: AMANTADINE HYDROCHLORIDE
     Dosage: UNK
  2. AMANTADINE. [Suspect]
     Active Substance: AMANTADINE HYDROCHLORIDE
     Dosage: 1 DF, UNK
     Route: 065
  3. MEBENDAZOLE. [Suspect]
     Active Substance: MEBENDAZOLE
     Dosage: 1 DF, UNK
  4. MEBENDAZOLE. [Suspect]
     Active Substance: MEBENDAZOLE
     Dosage: UNK
  5. SERTRALINE HCL [Suspect]
     Active Substance: SERTRALINE HYDROCHLORIDE
     Dosage: UNK
  6. MIRAPEX [Suspect]
     Active Substance: PRAMIPEXOLE DIHYDROCHLORIDE
     Dosage: UNK
  7. ZYPREXA [Suspect]
     Active Substance: OLANZAPINE
     Dosage: UNK
  8. PRAMIPEXOLE DIHYDROCHLORIDE. [Suspect]
     Active Substance: PRAMIPEXOLE DIHYDROCHLORIDE
     Dosage: UNK

REACTIONS (6)
  - Suicidal ideation [Unknown]
  - Disinhibition [Unknown]
  - Back pain [Unknown]
  - Oedema [Unknown]
  - Obsessive-compulsive disorder [Unknown]
  - Hallucination [Unknown]
